FAERS Safety Report 4267525-3 (Version None)
Quarter: 2004Q1

REPORT INFORMATION
  Report Type: 
  Country: None (occurrence: None)
  Receive Date: 20040109
  Receipt Date: 20030805
  Transmission Date: 20041129
  Serious: No
  Sender: FDA-Public Use
  Company Number: US-GLAXOSMITHKLINE-A0420538A

PATIENT
  Sex: Male

DRUGS (7)
  1. WELLBUTRIN [Suspect]
     Indication: DEPRESSION
     Dosage: 75MG PER DAY
     Route: 048
  2. ZYPREXA [Concomitant]
  3. DIAZIDE [Concomitant]
  4. VASOTEC [Concomitant]
  5. INSULIN [Concomitant]
  6. DIGITEK [Concomitant]
  7. AGGRENOX [Concomitant]

REACTIONS (2)
  - ASTHENIA [None]
  - DEVELOPMENTAL COORDINATION DISORDER [None]
